FAERS Safety Report 24578444 (Version 1)
Quarter: 2024Q4

REPORT INFORMATION
  Report Type: Report from Study
  Country: SG (occurrence: SG)
  Receive Date: 20241105
  Receipt Date: 20241105
  Transmission Date: 20250115
  Serious: Yes (Hospitalization)
  Sender: BOEHRINGER INGELHEIM
  Company Number: SG-BoehringerIngelheim-2024-BI-060208

PATIENT
  Age: 64 Year
  Sex: Male
  Weight: 86.8 kg

DRUGS (1)
  1. AFATINIB [Suspect]
     Active Substance: AFATINIB
     Indication: Product used for unknown indication
     Dosage: DAILY DOSE: 30 MILLIGRAM(S)
     Route: 048
     Dates: start: 20240416

REACTIONS (1)
  - Carbuncle [Unknown]

NARRATIVE: CASE EVENT DATE: 20241020
